FAERS Safety Report 18907087 (Version 5)
Quarter: 2021Q2

REPORT INFORMATION
  Report Type: Report from Study
  Country: DE (occurrence: DE)
  Receive Date: 20210217
  Receipt Date: 20210520
  Transmission Date: 20210717
  Serious: Yes (Death, Hospitalization)
  Sender: FDA-Public Use
  Company Number: DE-SEATTLE GENETICS-2021SGN00802

PATIENT
  Age: 38 Year
  Sex: Female
  Weight: 58 kg

DRUGS (9)
  1. TRASTUZUMAB. [Suspect]
     Active Substance: TRASTUZUMAB
     Indication: BREAST CANCER
     Dosage: 8 MG/KG, SINGLE
     Route: 042
     Dates: start: 20210212, end: 20210212
  2. CAPECITABINE. [Suspect]
     Active Substance: CAPECITABINE
     Indication: BREAST CANCER
     Dosage: 1000 MG/M2, BID
     Route: 048
  3. TRASTUZUMAB. [Suspect]
     Active Substance: TRASTUZUMAB
     Dosage: 6 MG/KG, Q3WEEKS
     Route: 042
  4. PANTOPRAZOLE [Concomitant]
     Active Substance: PANTOPRAZOLE
  5. TUCATINIB [Suspect]
     Active Substance: TUCATINIB
     Indication: BREAST CANCER
     Dosage: 300 MG, BID
     Route: 048
     Dates: start: 20210212, end: 20210212
  6. NOVAMINSULFON [Concomitant]
     Active Substance: METAMIZOLE
  7. DEXAMETHASONE. [Concomitant]
     Active Substance: DEXAMETHASONE
  8. MOVICOL [Concomitant]
     Active Substance: POLYETHYLENE GLYCOL 3350\POTASSIUM CHLORIDE\SODIUM BICARBONATE\SODIUM CHLORIDE
  9. DOMPERIDON [DOMPERIDONE] [Concomitant]
     Active Substance: DOMPERIDONE
     Dosage: 10 MG, QID

REACTIONS (4)
  - Pain [Not Recovered/Not Resolved]
  - Metastases to liver [Fatal]
  - Acute hepatic failure [Fatal]
  - Constipation [Unknown]

NARRATIVE: CASE EVENT DATE: 20210212
